FAERS Safety Report 15757596 (Version 2)
Quarter: 2019Q1

REPORT INFORMATION
  Report Type: Report from Study
  Country: None (occurrence: RO)
  Receive Date: 20181224
  Receipt Date: 20190226
  Transmission Date: 20190417
  Serious: Yes (Death, Life-Threatening, Hospitalization, Disabling, Other)
  Sender: FDA-Public Use
  Company Number: RO-ABBVIE-18S-135-2602656-00

PATIENT
  Age: 51 Year
  Sex: Male

DRUGS (10)
  1. SELENIUM [Concomitant]
     Active Substance: SELENIUM
     Indication: HYPOTHYROIDISM
     Dosage: UNKNOWN
     Route: 048
     Dates: start: 20181029, end: 20181217
  2. VIEKIRAX [Suspect]
     Active Substance: OMBITASVIR\PARITAPREVIR\RITONAVIR
     Indication: HEPATIC CIRRHOSIS
  3. NORVASC [Concomitant]
     Active Substance: AMLODIPINE BESYLATE
     Indication: HYPERTENSION
     Route: 048
     Dates: start: 20180518, end: 20181217
  4. GLURENORM [Concomitant]
     Active Substance: GLIQUIDONE
     Indication: DIABETES MELLITUS
     Route: 048
     Dates: end: 20181217
  5. DETRICAL [Concomitant]
     Indication: HYPOTHYROIDISM
     Dosage: UNKNOWN
     Route: 048
     Dates: start: 20181029, end: 20181217
  6. EXVIERA [Suspect]
     Active Substance: DASABUVIR
     Indication: HEPATITIS C
     Route: 048
     Dates: start: 20181030, end: 20181217
  7. EXVIERA [Suspect]
     Active Substance: DASABUVIR
     Indication: HEPATIC CIRRHOSIS
  8. ATACAND [Concomitant]
     Active Substance: CANDESARTAN CILEXETIL
     Indication: HYPERTENSION
     Route: 048
     Dates: start: 20180521, end: 20181217
  9. VIEKIRAX [Suspect]
     Active Substance: OMBITASVIR\PARITAPREVIR\RITONAVIR
     Indication: HEPATITIS C
     Route: 048
     Dates: start: 20181030, end: 20181217
  10. NEBILET [Concomitant]
     Active Substance: NEBIVOLOL
     Indication: HYPERTENSION
     Route: 048
     Dates: start: 20180518, end: 20181217

REACTIONS (21)
  - Pulmonary oedema [Recovered/Resolved]
  - Tachypnoea [Recovered/Resolved]
  - Oedema peripheral [Recovered/Resolved]
  - Blood pressure increased [Recovered/Resolved]
  - Pleurisy [Unknown]
  - Oliguria [Unknown]
  - Chest pain [Recovered/Resolved]
  - Pain in extremity [Recovered/Resolved]
  - Abdominal distension [Recovered/Resolved]
  - Pneumothorax [Unknown]
  - Diarrhoea [Recovered/Resolved]
  - General physical health deterioration [Recovered/Resolved]
  - Tachycardia [Recovered/Resolved]
  - Cardiac arrest [Fatal]
  - Somnolence [Recovered/Resolved]
  - Motor dysfunction [Recovered/Resolved]
  - Aortic dissection [Unknown]
  - Acidosis [Recovered/Resolved]
  - Dyspnoea [Recovered/Resolved]
  - Ascites [Unknown]
  - Diarrhoea [Recovered/Resolved]

NARRATIVE: CASE EVENT DATE: 2018
